FAERS Safety Report 8817094 (Version 1)
Quarter: 2012Q4

REPORT INFORMATION
  Report Type: Spontaneous
  Country: US (occurrence: None)
  Receive Date: 20121003
  Receipt Date: 20121003
  Transmission Date: 20130627
  Serious: No
  Sender: FDA-Public Use
  Company Number: None

PATIENT
  Age: 68 Year
  Sex: Female
  Weight: 76.2 kg

DRUGS (3)
  1. VENLAFAXINE [Suspect]
     Indication: OSTEOARTHRITIS
     Dosage: 1 tablet, twice daily, po
     Route: 048
     Dates: start: 20120827, end: 20120902
  2. VENLAFAXINE [Suspect]
     Indication: DEPRESSION
     Dosage: 1 tablet, twice daily, po
     Route: 048
     Dates: start: 20120827, end: 20120902
  3. VENLAFAXINE [Suspect]
     Indication: BACK PAIN
     Dosage: 1 tablet, twice daily, po
     Route: 048
     Dates: start: 20120827, end: 20120902

REACTIONS (1)
  - Pruritus generalised [None]
